FAERS Safety Report 15686697 (Version 1)
Quarter: 2018Q4

REPORT INFORMATION
  Report Type: Spontaneous
  Country: US (occurrence: US)
  Receive Date: 20181204
  Receipt Date: 20181204
  Transmission Date: 20190205
  Serious: No
  Sender: FDA-Public Use
  Company Number: US-VIFOR (INTERNATIONAL) INC.-VIT-2018-11619

PATIENT
  Sex: Male

DRUGS (13)
  1. LISINOPRIL. [Concomitant]
     Active Substance: LISINOPRIL
  2. JANUVIA [Concomitant]
     Active Substance: SITAGLIPTIN PHOSPHATE
     Indication: DIABETES MELLITUS
  3. VELTASSA [Suspect]
     Active Substance: PATIROMER
     Indication: BLOOD POTASSIUM ABNORMAL
     Dates: start: 201701
  4. VITAMIN D [Concomitant]
     Active Substance: CHOLECALCIFEROL
  5. FOLIC ACID. [Concomitant]
     Active Substance: FOLIC ACID
  6. LEVOTHYROXINE. [Concomitant]
     Active Substance: LEVOTHYROXINE
  7. VANCOMYCIN [Concomitant]
     Active Substance: VANCOMYCIN
     Indication: PROPHYLAXIS
  8. SODIUM CARBONATE [Concomitant]
     Active Substance: SODIUM CARBONATE
  9. VELTASSA [Suspect]
     Active Substance: PATIROMER
  10. CALCITRIOL. [Concomitant]
     Active Substance: CALCITRIOL
     Indication: BLOOD PRESSURE ABNORMAL
  11. CARVEDILOL. [Concomitant]
     Active Substance: CARVEDILOL
  12. EPOGEN [Concomitant]
     Active Substance: ERYTHROPOIETIN
     Dosage: SHOT 30,000 UNITS
  13. CALCIUM [Concomitant]
     Active Substance: CALCIUM

REACTIONS (7)
  - Inappropriate schedule of product administration [Unknown]
  - Off label use [Unknown]
  - Incorrect dose administered [Unknown]
  - Product dose omission [Unknown]
  - Product use complaint [Unknown]
  - Weight increased [Unknown]
  - Abnormal faeces [Unknown]
